FAERS Safety Report 4821898-9 (Version None)
Quarter: 2005Q4

REPORT INFORMATION
  Report Type: 
  Country: None (occurrence: None)
  Receive Date: 20051107
  Receipt Date: 20051014
  Transmission Date: 20060501
  Serious: Yes (Other)
  Sender: FDA-Public Use
  Company Number: DE-ROCHE-421177

PATIENT
  Sex: Male
  Weight: 75 kg

DRUGS (4)
  1. XENICAL [Suspect]
     Indication: WEIGHT CONTROL
     Route: 048
     Dates: end: 20051014
  2. SORTIS [Concomitant]
     Route: 048
  3. TENORMIN [Concomitant]
     Indication: HYPERTENSION
     Dosage: DRUG NAME REPORTED AS TENORMIN 25
     Route: 048
  4. JODTHYROX [Concomitant]
     Indication: HYPOTHYROIDISM
     Route: 048

REACTIONS (2)
  - BLOOD AMYLASE INCREASED [None]
  - LIPASE INCREASED [None]
